FAERS Safety Report 14505125 (Version 4)
Quarter: 2019Q1

REPORT INFORMATION
  Report Type: Report from Study
  Country: US (occurrence: US)
  Receive Date: 20180208
  Receipt Date: 20190121
  Transmission Date: 20190417
  Serious: Yes (Other)
  Sender: FDA-Public Use
  Company Number: US-UCBSA-2018004842

PATIENT
  Age: 51 Year
  Sex: Female
  Weight: 124 kg

DRUGS (19)
  1. BRIVARACETAM [Suspect]
     Active Substance: BRIVARACETAM
     Dosage: 75 MG, ONCE DAILY (QD)
     Route: 048
     Dates: start: 20171119, end: 20171123
  2. SYNTHROID [Concomitant]
     Active Substance: LEVOTHYROXINE SODIUM
     Indication: HYPOTHYROIDISM
     Dosage: 75 ?G, ONCE DAILY (QD)
     Route: 048
     Dates: start: 19951121
  3. ONFI [Concomitant]
     Active Substance: CLOBAZAM
     Indication: EPILEPSY
     Dosage: 5 MG MORNING AND 2.5 MG EVENING, 2X/DAY (BID)
     Route: 048
     Dates: start: 20121011, end: 20171120
  4. FYCOMPA [Concomitant]
     Active Substance: PERAMPANEL
     Dosage: 8 MG, 2X/DAY (BID)
     Route: 048
     Dates: start: 20180607, end: 20180609
  5. ZYPREXA [Concomitant]
     Active Substance: OLANZAPINE
     Indication: SCHIZOAFFECTIVE DISORDER
     Dosage: 10 MG, ONCE DAILY (QD)
     Route: 048
     Dates: start: 1997
  6. BENEFIBER [Concomitant]
     Active Substance: STARCH, WHEAT
     Indication: CONSTIPATION
     Dosage: 1 DF, ONCE DAILY (QD)
     Route: 048
     Dates: start: 2008
  7. SIMVASTATIN. [Concomitant]
     Active Substance: SIMVASTATIN
     Indication: HYPERLIPIDAEMIA
     Dosage: 40 MG, ONCE DAILY (QD)
     Route: 048
     Dates: start: 2008
  8. BRIVARACETAM [Suspect]
     Active Substance: BRIVARACETAM
     Dosage: 150 MG, ONCE DAILY (QD)
     Route: 048
     Dates: start: 20171206, end: 20180112
  9. BRIVARACETAM [Suspect]
     Active Substance: BRIVARACETAM
     Indication: EPILEPSY
     Dosage: 50 MG, ONCE DAILY (QD)
     Route: 048
     Dates: start: 20171105, end: 20171118
  10. LAMOTRIGINE. [Concomitant]
     Active Substance: LAMOTRIGINE
     Indication: EPILEPSY
     Dosage: 200 MG, 2X/DAY (BID)
     Route: 048
     Dates: start: 1995
  11. MULTIVITAMIN [Concomitant]
     Active Substance: VITAMINS
     Indication: SUPPLEMENTATION THERAPY
     Dosage: 1 DF, ONCE DAILY (QD)
     Dates: start: 1995
  12. ESLICARBAZEPINE [Concomitant]
     Active Substance: ESLICARBAZEPINE
     Indication: EPILEPSY
     Dosage: UNK
     Dates: start: 20180829
  13. BRIVARACETAM [Suspect]
     Active Substance: BRIVARACETAM
     Dosage: 100 MG, ONCE DAILY (QD)
     Route: 048
     Dates: start: 20171124, end: 20171205
  14. ONFI [Concomitant]
     Active Substance: CLOBAZAM
     Dosage: 2.5 MG, 2X/DAY (BID)
     Route: 048
     Dates: start: 20171121, end: 20171202
  15. FELBATOL [Concomitant]
     Active Substance: FELBAMATE
     Indication: EPILEPSY
     Dosage: 900 MG + 900 MG+ 1200 MG, 3X/DAY (TID)
     Route: 048
     Dates: start: 1998
  16. LEXAPRO [Concomitant]
     Active Substance: ESCITALOPRAM OXALATE
     Indication: DEPRESSION
     Dosage: 20 MG, 2X/DAY (BID)
     Route: 048
     Dates: start: 2005
  17. FYCOMPA [Concomitant]
     Active Substance: PERAMPANEL
     Indication: EPILEPSY
     Dosage: 2 MG, 2X/DAY (BID)
     Route: 048
     Dates: start: 20180401, end: 20180418
  18. FYCOMPA [Concomitant]
     Active Substance: PERAMPANEL
     Dosage: 4 MG, 2X/DAY (BID)
     Route: 048
     Dates: start: 20180419, end: 20180420
  19. FYCOMPA [Concomitant]
     Active Substance: PERAMPANEL
     Dosage: 6 MG, 2X/DAY (BID)
     Route: 048
     Dates: start: 20180421

REACTIONS (9)
  - Ear infection [Recovered/Resolved]
  - Urinary tract infection [Recovered/Resolved]
  - Upper respiratory tract infection [Recovered/Resolved]
  - Irritability [Recovered/Resolved]
  - Generalised tonic-clonic seizure [Unknown]
  - Hand fracture [Not Recovered/Not Resolved]
  - Focal dyscognitive seizures [Unknown]
  - Fall [Recovered/Resolved]
  - Simple partial seizures [Unknown]

NARRATIVE: CASE EVENT DATE: 20180419
